FAERS Safety Report 6023585-0 (Version None)
Quarter: 2008Q4

REPORT INFORMATION
  Report Type: 
  Country: None (occurrence: None)
  Receive Date: 20081226
  Receipt Date: 20081226
  Transmission Date: 20090506
  Serious: Yes (Hospitalization)
  Sender: FDA-Public Use
  Company Number: None

PATIENT
  Age: 16 Year
  Sex: Male
  Weight: 65.7716 kg

DRUGS (1)
  1. MINOCIN [Suspect]
     Indication: ACNE
     Dosage: 1 TWICE DAILY PO
     Route: 048
     Dates: start: 20081120, end: 20081218

REACTIONS (6)
  - BACK PAIN [None]
  - CONVULSION [None]
  - FALL [None]
  - FATIGUE [None]
  - FEELING ABNORMAL [None]
  - MUSCLE TWITCHING [None]
